FAERS Safety Report 9058795 (Version 1)
Quarter: 2013Q1

REPORT INFORMATION
  Report Type: Spontaneous
  Country: JP (occurrence: JP)
  Receive Date: 20130204
  Receipt Date: 20130204
  Transmission Date: 20140127
  Serious: Yes (Life-Threatening)
  Sender: FDA-Public Use
  Company Number: JP-009507513-1212JPN005979

PATIENT
  Age: 27 Year
  Sex: Female
  Weight: 45 kg

DRUGS (4)
  1. GASTER D [Suspect]
     Indication: GASTRITIS
     Dosage: 20 MG,UID/ QD
     Route: 048
     Dates: start: 20121210, end: 20121210
  2. NAUZELIN [Suspect]
     Indication: GASTRITIS
     Dosage: 10 MG,UID/ QD
     Route: 048
     Dates: start: 20121210, end: 20121210
  3. FOSMICIN [Suspect]
     Indication: ENTERITIS INFECTIOUS
     Dosage: 1000 MG, UID/QD
     Route: 048
     Dates: start: 20121210, end: 20121210
  4. ROCEPHIN [Suspect]
     Indication: ENTERITIS INFECTIOUS
     Dosage: 1 G, UID/QD
     Route: 041
     Dates: start: 20121210, end: 20121210

REACTIONS (1)
  - Anaphylactic shock [Recovering/Resolving]
